FAERS Safety Report 23353551 (Version 11)
Quarter: 2024Q3

REPORT INFORMATION
  Report Type: Report from Study
  Country: IL (occurrence: IL)
  Receive Date: 20231231
  Receipt Date: 20240713
  Transmission Date: 20241017
  Serious: Yes (Death, Hospitalization, Other)
  Sender: ABBVIE
  Company Number: IL-ABBVIE-5563466

PATIENT
  Age: 67 Year
  Sex: Male

DRUGS (2)
  1. CARBIDOPA\LEVODOPA [Suspect]
     Active Substance: CARBIDOPA\LEVODOPA
     Indication: Parkinson^s disease
     Dosage: LAST ADMIN DATE - DEC 2023
     Route: 050
     Dates: start: 20231211
  2. CARBIDOPA\LEVODOPA [Suspect]
     Active Substance: CARBIDOPA\LEVODOPA
     Dosage: CONTINUOUS DOSAGE 3.5ML/H, EXTRA DOSAGE 1.5ML, NIGHT CONTINUOUS DOSAGE (ML/H) 3?DURATION TEXT: RE...
     Route: 050

REACTIONS (12)
  - Pneumonia aspiration [Fatal]
  - Pharyngitis streptococcal [Recovered/Resolved]
  - Pyrexia [Recovered/Resolved]
  - Aspiration [Unknown]
  - Acinetobacter infection [Unknown]
  - Decubitus ulcer [Recovered/Resolved]
  - Pyrexia [Recovering/Resolving]
  - Respiration abnormal [Recovering/Resolving]
  - Aspiration [Recovered/Resolved]
  - Infection [Recovering/Resolving]
  - Parenteral nutrition [Not Recovered/Not Resolved]
  - Gastrostomy [Recovered/Resolved]

NARRATIVE: CASE EVENT DATE: 20231222
